FAERS Safety Report 15586536 (Version 1)
Quarter: 2018Q4

REPORT INFORMATION
  Report Type: Spontaneous
  Country: ES (occurrence: ES)
  Receive Date: 20181105
  Receipt Date: 20181105
  Transmission Date: 20190205
  Serious: Yes (Disabling)
  Sender: FDA-Public Use
  Company Number: ES-PURDUE-GBR-2018-0061038

PATIENT
  Age: 41 Year
  Sex: Female

DRUGS (10)
  1. ROCURONIUM [Suspect]
     Active Substance: ROCURONIUM BROMIDE
     Indication: HYPOTENSIVE ANAESTHESIA PROCEDURE
     Route: 065
  2. REMIFENTANIL [Suspect]
     Active Substance: REMIFENTANIL
     Indication: HYPOTENSIVE ANAESTHESIA PROCEDURE
     Route: 065
  3. OXYGEN. [Concomitant]
     Active Substance: OXYGEN
     Indication: OXYGEN THERAPY
     Dosage: INSPIRED OXYGEN FRACTION OF 40% (OXYGEN/AIR) DURING MAINTENANCE OF ANAESTHESIA
     Route: 065
  4. PROPOFOL. [Suspect]
     Active Substance: PROPOFOL
     Indication: HYPOTENSIVE ANAESTHESIA PROCEDURE
     Route: 065
  5. MIDAZOLAM [Concomitant]
     Active Substance: MIDAZOLAM HYDROCHLORIDE
     Indication: PREMEDICATION
     Route: 042
  6. FENTANYL. [Suspect]
     Active Substance: FENTANYL
     Indication: HYPOTENSIVE ANAESTHESIA PROCEDURE
     Dosage: ADDITIONAL DOSES ALSO ADMINISTERED THROUGHOUT THE PROCEDURE
     Route: 065
  7. OXYMETAZOLINE [Concomitant]
     Active Substance: OXYMETAZOLINE
     Indication: PREMEDICATION
     Route: 050
  8. MORPHINE SULFATE. [Suspect]
     Active Substance: MORPHINE SULFATE
     Indication: HYPOTENSIVE ANAESTHESIA PROCEDURE
     Route: 065
  9. SEVOFLURANE. [Suspect]
     Active Substance: SEVOFLURANE
     Indication: HYPOTENSIVE ANAESTHESIA PROCEDURE
     Route: 065
  10. OXYGEN. [Concomitant]
     Active Substance: OXYGEN
     Dosage: OXYGEN 60% APPLIED DURING 5 MIN USING A FACIAL MASK
     Route: 065

REACTIONS (1)
  - Amaurosis [Not Recovered/Not Resolved]
